FAERS Safety Report 12099146 (Version 1)
Quarter: 2016Q1

REPORT INFORMATION
  Report Type: Other
  Country: US (occurrence: US)
  Receive Date: 20160222
  Receipt Date: 20160222
  Transmission Date: 20160526
  Serious: Yes (Hospitalization, Other)
  Sender: FDA-Public Use
  Company Number: US-SHIRE-US201601582

PATIENT
  Age: 75 Year
  Sex: Female

DRUGS (1)
  1. GATTEX [Suspect]
     Active Substance: TEDUGLUTIDE\WATER
     Indication: SHORT-BOWEL SYNDROME
     Dosage: UNK
     Route: 058
     Dates: start: 20151013

REACTIONS (5)
  - Crohn^s disease [Unknown]
  - Anaemia [Unknown]
  - Diarrhoea [Unknown]
  - Adverse event [Unknown]
  - Dehydration [Unknown]

NARRATIVE: CASE EVENT DATE: 2016
